FAERS Safety Report 25635219 (Version 2)
Quarter: 2025Q4

REPORT INFORMATION
  Report Type: Spontaneous
  Country: US (occurrence: US)
  Receive Date: 20250802
  Receipt Date: 20251224
  Transmission Date: 20260118
  Serious: Yes (Hospitalization, Other)
  Sender: ELI LILLY AND COMPANY
  Company Number: US-ELI_LILLY_AND_COMPANY-US202507026439

PATIENT
  Age: 60 Year
  Sex: Female

DRUGS (10)
  1. TRULICITY [Suspect]
     Active Substance: DULAGLUTIDE
     Indication: Type 2 diabetes mellitus
     Dosage: UNK UNK, WEEKLY (1/W)
     Route: 065
     Dates: start: 201511, end: 202201
  2. OZEMPIC [Suspect]
     Active Substance: SEMAGLUTIDE
     Indication: Type 2 diabetes mellitus
     Dosage: 0.5 MG, WEEKLY (1/W)
     Route: 065
     Dates: start: 20180201, end: 202310
  3. VICTOZA [Concomitant]
     Active Substance: LIRAGLUTIDE
     Indication: Product used for unknown indication
     Dosage: UNK
     Dates: start: 20100101, end: 20171001
  4. NOVOLOG [Concomitant]
     Active Substance: INSULIN ASPART
     Indication: Diabetes mellitus
     Dosage: UNK
     Dates: start: 20230101
  5. MOUNJARO [Concomitant]
     Active Substance: TIRZEPATIDE
     Indication: Diabetes mellitus
  6. TRESIBA [Concomitant]
     Active Substance: INSULIN DEGLUDEC
     Indication: Diabetes mellitus
     Dosage: UNK
     Dates: start: 20180101, end: 20210101
  7. PANTOPRAZOLE [Concomitant]
     Active Substance: PANTOPRAZOLE
     Indication: Dyspepsia
     Dosage: UNK
     Dates: start: 20170101
  8. LEVOTHYROXINE [Concomitant]
     Active Substance: LEVOTHYROXINE
     Indication: Thyroid disorder
     Dosage: UNK
     Dates: start: 20170101
  9. TYLENOL [Concomitant]
     Active Substance: ACETAMINOPHEN
     Indication: Pain
     Dosage: UNK
     Dates: start: 20200101
  10. ASPIRIN [Concomitant]
     Active Substance: ASPIRIN
     Indication: Pain
     Dosage: UNK
     Dates: start: 20200101

REACTIONS (8)
  - Nausea [Recovered/Resolved]
  - Impaired gastric emptying [Recovered/Resolved]
  - Vomiting [Recovered/Resolved]
  - Constipation [Recovered/Resolved]
  - Abdominal pain [Unknown]
  - Diarrhoea [Unknown]
  - Blood triglycerides increased [Not Recovered/Not Resolved]
  - Blood cholesterol increased [Not Recovered/Not Resolved]

NARRATIVE: CASE EVENT DATE: 20181001
